FAERS Safety Report 8904139 (Version 1)
Quarter: 2012Q4

REPORT INFORMATION
  Report Type: 
  Country: US (occurrence: US)
  Receive Date: 20121112
  Receipt Date: 20121112
  Transmission Date: 20130627
  Serious: No
  Sender: FDA-Public Use
  Company Number: US-COVIDIEN/TYCO HEALTHCARE/MALLINCKRODT-T201203546

PATIENT
  Age: 35 Year
  Sex: Female
  Weight: 52.15 kg

DRUGS (5)
  1. FENTANYL TRANSDERMAL SYSTEM [Suspect]
     Indication: BACK PAIN
     Dosage: 100 ug/hr, Q 48 hrs
     Route: 062
     Dates: start: 20120913
  2. FENTANYL [Concomitant]
     Dosage: UNK
     Route: 062
     Dates: start: 2003, end: 20120913
  3. LYRICA [Concomitant]
     Indication: NEUROPATHY PERIPHERAL
     Dosage: 1 tab, TID
     Route: 048
  4. PERCOCET                           /00446701/ [Concomitant]
     Indication: BREAKTHROUGH PAIN
     Dosage: 10/325 mg, QID
     Route: 048
  5. XANAX [Concomitant]
     Indication: ANXIETY
     Dosage: 1 tab, QID
     Route: 048

REACTIONS (1)
  - Application site vesicles [Recovered/Resolved]
